FAERS Safety Report 9305383 (Version 2)
Quarter: 2013Q2

REPORT INFORMATION
  Report Type: Report from Study
  Country: US (occurrence: US)
  Receive Date: 20130523
  Receipt Date: 20130531
  Transmission Date: 20140414
  Serious: Yes (Hospitalization, Other)
  Sender: FDA-Public Use
  Company Number: PHEH2013US011360

PATIENT
  Age: 42 Year
  Sex: Female
  Weight: 86.17 kg

DRUGS (3)
  1. GILENYA [Suspect]
     Indication: RELAPSING-REMITTING MULTIPLE SCLEROSIS
     Dosage: 0.5 MG, QD
     Route: 048
     Dates: start: 20130514, end: 20130514
  2. LISINOPRIL [Concomitant]
     Indication: HYPERTENSION
     Dosage: UNK
  3. VITAMIN D [Concomitant]
     Indication: VITAMIN D DECREASED
     Dosage: 1000 IU, UNK
     Route: 048

REACTIONS (3)
  - Blood pressure decreased [Unknown]
  - Atrioventricular block second degree [Recovered/Resolved]
  - Heart rate irregular [Unknown]
